FAERS Safety Report 6761902-4 (Version None)
Quarter: 2010Q2

REPORT INFORMATION
  Report Type: 
  Country: None (occurrence: None)
  Receive Date: 20100609
  Receipt Date: 20100528
  Transmission Date: 20101027
  Serious: Yes (Other)
  Sender: FDA-Public Use
  Company Number: PHHY2010BR35071

PATIENT
  Age: 48 Year
  Sex: Female
  Weight: 86 kg

DRUGS (4)
  1. METFORMIN [Suspect]
     Indication: DIABETES MELLITUS
     Dosage: 1 TABLET PER DAY
     Route: 048
  2. ZELMAC [Suspect]
     Indication: IRRITABLE BOWEL SYNDROME
     Route: 048
  3. CERAZETTE [Concomitant]
     Indication: HORMONE THERAPY
     Dosage: 1 TABLET PER DAY
     Route: 048
  4. ABLOK PLUS [Concomitant]
     Indication: HYPERTENSION
     Dosage: 1 TABLET PER DAY
     Route: 048

REACTIONS (6)
  - ABDOMINAL PAIN [None]
  - BLOOD GLUCOSE INCREASED [None]
  - CONSTIPATION [None]
  - FLATULENCE [None]
  - HAEMORRHAGE [None]
  - PROCTALGIA [None]
